FAERS Safety Report 10389035 (Version 1)
Quarter: 2014Q1

REPORT INFORMATION
  Report Type: Spontaneous
  Country: US (occurrence: None)
  Receive Date: 20140306
  Receipt Date: 20140306
  Transmission Date: 20141002
  Serious: Yes (Hospitalization)
  Sender: FDA-Public Use
  Company Number: 163-21880-13102586

PATIENT
  Age: 76 Year
  Sex: Female
  Weight: 68.04 kg

DRUGS (4)
  1. REVLIMID [Suspect]
     Indication: PLASMA CELL MYELOMA
     Dosage: 21 IN 21 D
     Route: 048
     Dates: start: 20130702, end: 201310
  2. ACYCLOVIR (ACICLOVIR) (ACICLOVIR) [Concomitant]
  3. MELOXICAM [Concomitant]
  4. DULCOLAX (BISACODYL) [Concomitant]

REACTIONS (2)
  - Urinary tract infection [None]
  - Plasma cell myeloma [None]
